FAERS Safety Report 24845987 (Version 1)
Quarter: 2025Q1

REPORT INFORMATION
  Report Type: Spontaneous
  Country: CN (occurrence: CN)
  Receive Date: 20250115
  Receipt Date: 20250115
  Transmission Date: 20250408
  Serious: Yes (Hospitalization)
  Sender: ALEXION PHARMACEUTICALS
  Company Number: CN-ASTRAZENECA-202501CHN006835CN

PATIENT
  Age: 80 Year

DRUGS (1)
  1. BRILINTA [Suspect]
     Active Substance: TICAGRELOR
     Indication: Myocardial infarction
     Dosage: 1 DOSAGE FORM, BID

REACTIONS (5)
  - Arthralgia [Recovered/Resolved]
  - Joint swelling [Recovered/Resolved]
  - Dyspnoea [Recovered/Resolved]
  - Wheezing [Recovered/Resolved]
  - Tachypnoea [Recovered/Resolved]
